FAERS Safety Report 25837786 (Version 1)
Quarter: 2025Q3

REPORT INFORMATION
  Report Type: Spontaneous
  Country: GB (occurrence: GB)
  Receive Date: 20250923
  Receipt Date: 20250923
  Transmission Date: 20251020
  Serious: Yes (Other)
  Sender: ELI LILLY AND COMPANY
  Company Number: None

PATIENT
  Age: 29 Year
  Sex: Female
  Weight: 95 kg

DRUGS (1)
  1. MOUNJARO [Suspect]
     Active Substance: TIRZEPATIDE
     Indication: Weight control
     Route: 065

REACTIONS (6)
  - Idiopathic intracranial hypertension [Not Recovered/Not Resolved]
  - Papilloedema [Unknown]
  - Headache [Unknown]
  - Vision blurred [Unknown]
  - Vitreous floaters [Unknown]
  - Dizziness [Unknown]

NARRATIVE: CASE EVENT DATE: 20241001
